FAERS Safety Report 23977906 (Version 1)
Quarter: 2024Q2

REPORT INFORMATION
  Report Type: Spontaneous
  Country: CN (occurrence: CN)
  Receive Date: 20240614
  Receipt Date: 20240614
  Transmission Date: 20240715
  Serious: Yes (Other)
  Sender: FDA-Public Use
  Company Number: CN-PFIZER INC-PV202400078103

PATIENT
  Age: 74 Year
  Sex: Female
  Weight: 45 kg

DRUGS (5)
  1. SOLU-MEDROL [Suspect]
     Active Substance: METHYLPREDNISOLONE SODIUM SUCCINATE
     Indication: Asthma
     Dosage: 80 MG, 1X/DAY
     Route: 041
     Dates: start: 20240611, end: 20240611
  2. CIPROFLOXACIN LACTATE AND SODIUM CHLORIDE [Concomitant]
     Indication: Anti-infective therapy
     Dosage: 0.2 G, 2X/DAY
     Route: 041
     Dates: start: 20240609, end: 20240611
  3. AMINOPHYLLINE [Concomitant]
     Active Substance: AMINOPHYLLINE
     Indication: Asthma
     Dosage: 0.25 G, 1X/DAY
     Route: 041
     Dates: start: 20240609, end: 20240611
  4. SODIUM CHLORIDE [Concomitant]
     Active Substance: SODIUM CHLORIDE
     Indication: Vehicle solution use
     Dosage: 100 ML, 1X/DAY
     Route: 041
     Dates: start: 20240611, end: 20240611
  5. PIPERACILLIN SODIUM [Concomitant]
     Active Substance: PIPERACILLIN SODIUM
     Indication: Anti-infective therapy
     Dosage: 4 G, 2X/DAY
     Route: 041
     Dates: start: 20240609, end: 20240613

REACTIONS (2)
  - Nausea [Recovering/Resolving]
  - Vomiting [Recovering/Resolving]

NARRATIVE: CASE EVENT DATE: 20240611
